FAERS Safety Report 10098166 (Version 1)
Quarter: 2014Q2

REPORT INFORMATION
  Report Type: Spontaneous
  Country: US (occurrence: US)
  Receive Date: 20140423
  Receipt Date: 20140423
  Transmission Date: 20141212
  Serious: Yes (Other)
  Sender: FDA-Public Use
  Company Number: US-ELI_LILLY_AND_COMPANY-US201404004365

PATIENT
  Age: 77 Year
  Sex: Male

DRUGS (2)
  1. CYMBALTA [Suspect]
     Indication: DEPRESSION
     Dosage: 30MG/ Q AM
  2. CYMBALTA [Suspect]
     Indication: ANXIETY
     Dosage: 20MG/QPM
     Dates: start: 2011

REACTIONS (3)
  - Pseudomonas infection [Recovered/Resolved]
  - Malaise [Recovered/Resolved]
  - Depression [Unknown]
